FAERS Safety Report 8607115 (Version 3)
Quarter: 2013Q4

REPORT INFORMATION
  Report Type: Spontaneous
  Country: US (occurrence: US)
  Receive Date: 20120611
  Receipt Date: 20131128
  Transmission Date: 20140711
  Serious: Yes (Hospitalization)
  Sender: FDA-Public Use
  Company Number: US-ASTRAZENECA-2012SE36197

PATIENT
  Age: 55 Year
  Sex: Female
  Weight: 78 kg

DRUGS (17)
  1. NEXIUM [Suspect]
     Indication: GASTROOESOPHAGEAL REFLUX DISEASE
     Dosage: ONCE A DAY
     Route: 048
  2. NEXIUM [Suspect]
     Indication: GASTROOESOPHAGEAL REFLUX DISEASE
     Route: 048
     Dates: start: 20080124
  3. HYZAAR [Concomitant]
     Dosage: 50-12.5 MG
     Dates: start: 20061216
  4. ZOLOFT [Concomitant]
     Dates: start: 20060912
  5. CITALOPRAM HBR [Concomitant]
     Dosage: 20 TO 40 MG
     Dates: start: 20071102
  6. HYDROCODONE APAP [Concomitant]
     Dosage: 5-500
     Dates: start: 20080205
  7. RANITIDINE [Concomitant]
     Dates: start: 20081110
  8. ALENDRONATE SODIUM [Concomitant]
     Dates: start: 20090311
  9. TUMS [Concomitant]
     Dosage: TOOK 2 TABLETS EVERY TIME I NEEDED THEM
  10. METOPROLOL TARTRATE [Concomitant]
     Indication: HYPERTENSION
  11. METOPROLOL TARTRATE [Concomitant]
     Indication: HEART RATE INCREASED
  12. SIMVASTATIN [Concomitant]
     Indication: BLOOD CHOLESTEROL INCREASED
  13. CITALOPRAM [Concomitant]
     Indication: DEPRESSION
  14. VITAMIN D [Concomitant]
  15. ASPIRIN [Concomitant]
     Indication: THROMBOSIS PROPHYLAXIS
  16. CEFADROXIL [Concomitant]
     Dates: start: 20080202
  17. EFFEXOR [Concomitant]
     Dates: start: 20050115

REACTIONS (9)
  - Breast cancer [Unknown]
  - Road traffic accident [Unknown]
  - Osteoporosis [Unknown]
  - Tibia fracture [Unknown]
  - Carpal tunnel syndrome [Unknown]
  - Calcium deficiency [Unknown]
  - Cataract [Unknown]
  - Vitamin D deficiency [Unknown]
  - Depression [Unknown]
